FAERS Safety Report 8313051-1 (Version None)
Quarter: 2012Q2

REPORT INFORMATION
  Report Type: 
  Country: None (occurrence: None)
  Receive Date: 20120426
  Receipt Date: 20120423
  Transmission Date: 20120825
  Serious: Yes (Other)
  Sender: FDA-Public Use
  Company Number: US-PFIZER INC-2012100453

PATIENT
  Sex: Female
  Weight: 95 kg

DRUGS (7)
  1. AMIODARONE HCL [Suspect]
     Indication: ATRIAL FIBRILLATION
     Dosage: 200 MG, ONCE A DAY
     Route: 048
     Dates: start: 19970901
  2. WARFARIN [Concomitant]
     Dosage: 5MG AND 2.5 MG, EVERY ALTERNATE DAY
  3. LASIX [Concomitant]
     Dosage: UNK
  4. COREG [Concomitant]
     Dosage: UNK
  5. VASOTEC [Concomitant]
     Dosage: 50 MG, ONCE A DAY
  6. LIPITOR [Concomitant]
     Dosage: UNK, ONCE A DAY
  7. SPIRONOLACTONE [Concomitant]
     Dosage: UNK

REACTIONS (5)
  - PHOTOSENSITIVITY REACTION [None]
  - CARPAL TUNNEL SYNDROME [None]
  - BODY HEIGHT DECREASED [None]
  - CATARACT [None]
  - DRUG INEFFECTIVE [None]
